FAERS Safety Report 9686295 (Version 1)
Quarter: 2013Q4

REPORT INFORMATION
  Report Type: Spontaneous
  Country: IT (occurrence: IT)
  Receive Date: 20131113
  Receipt Date: 20131113
  Transmission Date: 20140711
  Serious: Yes (Other)
  Sender: FDA-Public Use
  Company Number: IT-TEVA-442416ISR

PATIENT
  Age: 78 Year
  Sex: Male
  Weight: 65 kg

DRUGS (5)
  1. CARBOPLATINO TEVA [Suspect]
     Indication: NON-SMALL CELL LUNG CANCER
     Dosage: 375.6 MILLIGRAM DAILY;
     Route: 042
     Dates: start: 20130617, end: 20130626
  2. GEMCITABINA ACCORD [Suspect]
     Indication: NON-SMALL CELL LUNG CANCER
     Dosage: 1232 MILLIGRAM DAILY;
     Route: 042
     Dates: start: 20130417, end: 20130626
  3. ONDANSETRONE HIKMA [Concomitant]
     Dosage: 8 MILLIGRAM DAILY;
     Route: 042
  4. RANIDIL [Concomitant]
     Dosage: 50 MILLIGRAM DAILY;
     Route: 042
  5. SOLDESAM [Concomitant]
     Dosage: 8 MILLIGRAM DAILY;
     Route: 042

REACTIONS (3)
  - Abdominal pain [Unknown]
  - Constipation [Unknown]
  - Fatigue [Unknown]
